FAERS Safety Report 9250340 (Version 1)
Quarter: 2013Q1

REPORT INFORMATION
  Report Type: Spontaneous
  Country: US (occurrence: None)
  Receive Date: 20130305
  Receipt Date: 20130305
  Transmission Date: 20140127
  Serious: Yes (Hospitalization)
  Sender: FDA-Public Use
  Company Number: 163-21880-12042892

PATIENT
  Sex: 0

DRUGS (25)
  1. REVLIMID [Suspect]
     Indication: PLASMA CELL MYELOMA
     Dosage: 15MG, DAILY, 3 WEEKS ON, 1 WEEK ON, 1 WEEK, PO
     Dates: start: 20120629
  2. COUMADIN (WARFARIN SODIUM) [Concomitant]
     Dates: start: 20100622
  3. COREG (CARVEDILOL) [Concomitant]
     Dates: start: 20120423
  4. ZOCOR (SIMVASTATIN) [Concomitant]
  5. AMIODARONE (AMIODARONE) [Concomitant]
  6. GLUCOSAMINE CHONDROTIN (GLUCOSAMINE W/ CHONDROITIN [Concomitant]
  7. AVODART (DUTASTERIDE) CAPSULES [Concomitant]
  8. ACYCLOVIR (ACICLOVIR) (ACICLOVIR) [Concomitant]
  9. VITAMINS [Concomitant]
  10. TUMS PM (CALCIUM CARBONATE) [Concomitant]
  11. ECOTRIN (ACETYLSALICYLIC ACID) [Concomitant]
  12. SENNA S (COLOXYL WITH SENNA) [Concomitant]
  13. AMBIEN (ZOLPIDEM TARTRATE) [Concomitant]
  14. REGLAN (METOCLOPRAMIDE) [Concomitant]
  15. FOLIC ACID (FOLIC ACID) [Concomitant]
  16. VICODIN (VICODIN) [Concomitant]
  17. PROTONIX (UNKNOWN) [Concomitant]
  18. LASIX (FUROSEMIDE) [Concomitant]
  19. CARAFATE (SUCRALFATE) [Concomitant]
  20. MUCINEX (GUAIFENESIN) [Concomitant]
  21. ROBITUSSIN CODEINE (ROBITUSSIN A-C/OLD FORM) [Concomitant]
  22. DECADRON (DEXAMETHASONE) [Concomitant]
  23. FLOMOX (CEFCAPENE PIVOXIL HYDROCHLORIDE) [Concomitant]
  24. LISINOPRIL (LISINOPRIL) [Concomitant]
  25. Z-PAK (AZITHROMYCIN) (250 MILIGRAM, UNKNOWN) [Concomitant]

REACTIONS (2)
  - Cardiac failure congestive [None]
  - Pneumonia [None]
